FAERS Safety Report 5645481-0 (Version None)
Quarter: 2008Q1

REPORT INFORMATION
  Report Type: 
  Country: None (occurrence: None)
  Receive Date: 20080229
  Receipt Date: 20071004
  Transmission Date: 20080703
  Serious: No
  Sender: FDA-Public Use
  Company Number: US-BRISTOL-MYERS SQUIBB COMPANY-13929146

PATIENT
  Age: 55 Year
  Sex: Female

DRUGS (1)
  1. TAXOL [Suspect]
     Indication: NEOPLASM MALIGNANT

REACTIONS (2)
  - DRUG INEFFECTIVE [None]
  - NEUROPATHY PERIPHERAL [None]
